FAERS Safety Report 6347030-0 (Version None)
Quarter: 2009Q3

REPORT INFORMATION
  Report Type: 
  Country: None (occurrence: None)
  Receive Date: 20090909
  Receipt Date: 20090909
  Transmission Date: 20100115
  Serious: Yes (Other)
  Sender: FDA-Public Use
  Company Number: None

PATIENT
  Age: 39 Year
  Sex: Female
  Weight: 81.6475 kg

DRUGS (1)
  1. ZICAM COLD REMEDY NASAL SPRAY [Suspect]
     Indication: NASOPHARYNGITIS
     Dosage: PRODUCT RECOMMENDED AMOUNT ONCE
     Route: 045
     Dates: start: 20030101, end: 20030101

REACTIONS (4)
  - ANOSMIA [None]
  - DRUG INEFFECTIVE [None]
  - HYPOSMIA [None]
  - NASAL DISCOMFORT [None]
